FAERS Safety Report 6714137-5 (Version None)
Quarter: 2010Q2

REPORT INFORMATION
  Report Type: 
  Country: None (occurrence: None)
  Receive Date: 20100506
  Receipt Date: 20100428
  Transmission Date: 20101027
  Serious: Yes (Other)
  Sender: FDA-Public Use
  Company Number: FR-GILEAD-2010-0028813

PATIENT
  Sex: Male

DRUGS (6)
  1. ATRIPLA [Suspect]
     Indication: HIV INFECTION
     Route: 048
     Dates: start: 20090601, end: 20100308
  2. TRUVADA [Suspect]
     Indication: HIV INFECTION
     Route: 048
     Dates: start: 20071113, end: 20090601
  3. TRUVADA [Suspect]
     Dates: start: 20090101
  4. SUSTIVA [Suspect]
     Indication: HIV INFECTION
     Route: 048
     Dates: start: 20080115, end: 20090601
  5. KALETRA [Concomitant]
     Indication: HIV INFECTION
     Dates: start: 20020409, end: 20030101
  6. KALETRA [Concomitant]
     Dates: start: 20090101

REACTIONS (3)
  - DISTURBANCE IN SOCIAL BEHAVIOUR [None]
  - HOMICIDAL IDEATION [None]
  - PERSONALITY CHANGE [None]
